FAERS Safety Report 18319368 (Version 1)
Quarter: 2020Q3

REPORT INFORMATION
  Report Type: Spontaneous
  Country: DE (occurrence: DE)
  Receive Date: 20200928
  Receipt Date: 20200928
  Transmission Date: 20201103
  Serious: Yes (Hospitalization)
  Sender: FDA-Public Use
  Company Number: DE-TEVA-2020-DE-1831398

PATIENT
  Age: 80 Year
  Sex: Male
  Weight: 122.5 kg

DRUGS (10)
  1. DOXAZOSIN [Suspect]
     Active Substance: DOXAZOSIN MESYLATE
     Dosage: 4 MILLIGRAM DAILY; UNIT DOSE : 2 MG, 1?0?1?0,
     Route: 048
  2. TORASEMID [Suspect]
     Active Substance: TORSEMIDE
     Dosage: 50 MILLIGRAM DAILY; 1?0?0?0
     Route: 048
  3. DONEPEZIL. [Concomitant]
     Active Substance: DONEPEZIL
     Dosage: 10 MILLIGRAM DAILY; 1?0?0?0
     Route: 048
  4. FELODIPINE. [Concomitant]
     Active Substance: FELODIPINE
     Dosage: 5 MILLIGRAM DAILY; 1?0?0?0
     Route: 048
  5. MINOXIDIL. [Concomitant]
     Active Substance: MINOXIDIL
     Dosage: 5 MILLIGRAM DAILY; UNIT DOSE : 2.5 MG, 1?0?1?0
     Route: 048
  6. TELMISARTAN. [Suspect]
     Active Substance: TELMISARTAN
     Dosage: 40 MILLIGRAM DAILY; 1?0?0?0
     Route: 048
  7. ATORVASTATIN [Concomitant]
     Active Substance: ATORVASTATIN
     Dosage: 20 MILLIGRAM DAILY; 0?0?1?0
     Route: 048
  8. COLECALCIFEROL (VITAMIN D) [Concomitant]
     Dosage: UNIT DOSE : 20.000 IE, MONDAY
     Route: 048
  9. CARVEDILOL. [Concomitant]
     Active Substance: CARVEDILOL
     Dosage: 50 MILLIGRAM DAILY; UNIT DOSE : 25 MG, 1?0?1?0
     Route: 048
  10. ACETYLSALICYLSAEURE [Concomitant]
     Active Substance: ASPIRIN
     Dosage: 100 MILLIGRAM DAILY; 0?1?0?0
     Route: 048

REACTIONS (8)
  - Condition aggravated [Unknown]
  - Scrotal oedema [Unknown]
  - Fatigue [Unknown]
  - Oliguria [Unknown]
  - Face oedema [Unknown]
  - Dyspnoea [Unknown]
  - Weight increased [Unknown]
  - General physical health deterioration [Unknown]
